FAERS Safety Report 4406203-4 (Version None)
Quarter: 2004Q3

REPORT INFORMATION
  Report Type: 
  Country: None (occurrence: None)
  Receive Date: 20040723
  Receipt Date: 20040512
  Transmission Date: 20050211
  Serious: No
  Sender: FDA-Public Use
  Company Number: US-GLAXOSMITHKLINE-A0510524A

PATIENT
  Age: 49 Year
  Sex: Female

DRUGS (10)
  1. AVANDIA [Suspect]
     Dosage: 8MG PER DAY
     Route: 048
  2. TRICOR [Suspect]
     Indication: BLOOD CHOLESTEROL INCREASED
  3. POTASSIUM [Concomitant]
  4. DEMADEX [Concomitant]
  5. PROTONIX [Concomitant]
  6. COUMADIN [Concomitant]
  7. ALTACE [Concomitant]
  8. XANAX [Concomitant]
  9. LORTAB [Concomitant]
  10. LANTUS [Concomitant]

REACTIONS (3)
  - BRONCHITIS [None]
  - HYPERCHOLESTEROLAEMIA [None]
  - HYPERGLYCAEMIA [None]
